FAERS Safety Report 9629215 (Version 1)
Quarter: 2013Q4

REPORT INFORMATION
  Report Type: Spontaneous
  Country: IT (occurrence: IT)
  Receive Date: 20131017
  Receipt Date: 20131017
  Transmission Date: 20140711
  Serious: Yes (Other)
  Sender: FDA-Public Use
  Company Number: IT-BAYER-2013-124063

PATIENT
  Age: 37 Year
  Sex: Male

DRUGS (2)
  1. AVALOX [Suspect]
     Indication: LOWER RESPIRATORY TRACT INFECTION BACTERIAL
     Dosage: 400 MG DAILY DOSE
     Route: 048
     Dates: start: 20131002, end: 20131006
  2. TACHIPIRINA [Concomitant]

REACTIONS (2)
  - Diplopia [Not Recovered/Not Resolved]
  - VIth nerve disorder [Not Recovered/Not Resolved]
